APPROVED DRUG PRODUCT: SOTALOL HYDROCHLORIDE
Active Ingredient: SOTALOL HYDROCHLORIDE
Strength: 120MG
Dosage Form/Route: TABLET;ORAL
Application: A077616 | Product #002 | TE Code: AB
Applicant: AUROBINDO PHARMA USA INC
Approved: Feb 7, 2007 | RLD: No | RS: No | Type: RX